FAERS Safety Report 8406501-3 (Version None)
Quarter: 2012Q2

REPORT INFORMATION
  Report Type: 
  Country: None (occurrence: None)
  Receive Date: 20120604
  Receipt Date: 20120530
  Transmission Date: 20120825
  Serious: Yes (Hospitalization, Other)
  Sender: FDA-Public Use
  Company Number: US-BAYER-2012-012231

PATIENT
  Sex: Female
  Weight: 60 kg

DRUGS (24)
  1. LIPITOR [Concomitant]
     Indication: BLOOD CHOLESTEROL INCREASED
     Dosage: 20 MG, UNK
  2. VITAMIN C [Concomitant]
     Dosage: 1000 MG, UNK
  3. VITAMIN B-12 [Concomitant]
     Dosage: 2000 ?G, UNK
  4. OSTEO BI-FLEX [Concomitant]
  5. AMLODIPINE [Concomitant]
     Indication: HYPERTENSION
     Dosage: 1 DF, QD
  6. NEXIUM [Concomitant]
     Indication: DYSPEPSIA
     Dosage: 20 MG, QD
  7. BETASERON [Suspect]
     Indication: MULTIPLE SCLEROSIS
     Dosage: 0.25 MG, QOD
     Route: 058
     Dates: start: 20000101
  8. GABAPENTIN [Concomitant]
     Dosage: 100 MG, 2 DAILY
  9. PROVIGIL [Concomitant]
     Dosage: 100 MG, UNK
  10. CALCIUM D [Concomitant]
  11. ALISKIREN [Concomitant]
     Dosage: 150 MG, UNK
  12. ZINC SULFATE [Concomitant]
     Dosage: 30 MG, UNK
  13. MULTI-VITAMIN [Concomitant]
  14. MULTI-VITAMINS [Concomitant]
  15. FOLIC ACID [Concomitant]
  16. PLAVIX [Concomitant]
     Indication: CEREBROVASCULAR ACCIDENT PROPHYLAXIS
     Dosage: 75 MG, QD
  17. AMANTADINE HCL [Concomitant]
     Dosage: 100 MG, 2 DAILY
  18. VITAMIN D [Concomitant]
     Dosage: 1000 UNITS UNK
  19. HYLAND'S ARNICAID [Concomitant]
  20. BIOTIN [Concomitant]
     Dosage: 5000 UNITS, UNK
  21. AZELASTINE HCL [Concomitant]
     Dosage: 0.05 UNK, UNK
  22. ACETAMINOPHEN [Concomitant]
     Indication: PREMEDICATION
     Dosage: 325 MG, UNK
  23. TEKTURNA [Concomitant]
     Indication: HYPERTENSION
     Dosage: 1 DF, QD
  24. MELATONIN [Concomitant]
     Indication: SLEEP DISORDER THERAPY

REACTIONS (5)
  - PAIN [None]
  - INJECTION SITE MASS [None]
  - ARTHRALGIA [None]
  - SWOLLEN TONGUE [None]
  - CEREBROVASCULAR ACCIDENT [None]
